FAERS Safety Report 12285551 (Version 1)
Quarter: 2016Q2

REPORT INFORMATION
  Report Type: Spontaneous
  Country: US (occurrence: US)
  Receive Date: 20160420
  Receipt Date: 20160420
  Transmission Date: 20160815
  Serious: No
  Sender: FDA-Public Use
  Company Number: US-009507513-1604USA007550

PATIENT
  Age: 54 Year
  Sex: Female

DRUGS (9)
  1. LORATADINE. [Concomitant]
     Active Substance: LORATADINE
     Dosage: UNK
  2. REMERON [Concomitant]
     Active Substance: MIRTAZAPINE
     Dosage: UNK
     Route: 048
  3. VITAMIN D [Concomitant]
     Active Substance: CHOLECALCIFEROL
     Dosage: UNK
  4. ZANTAC [Concomitant]
     Active Substance: RANITIDINE HYDROCHLORIDE
     Dosage: UNK
  5. PROVENTIL [Suspect]
     Active Substance: ALBUTEROL
     Indication: PROPHYLAXIS AGAINST BRONCHOSPASM
     Dosage: STRENGHT 90 MCG 1 STANDARD DOSE OF 6.7; FORMULATION: INHALER
     Route: 055
  6. FOLIC ACID. [Concomitant]
     Active Substance: FOLIC ACID
     Dosage: UNK
  7. BENADRYL [Concomitant]
     Active Substance: DIPHENHYDRAMINE HYDROCHLORIDE
     Dosage: UNK
  8. DILANTIN [Concomitant]
     Active Substance: PHENYTOIN
     Dosage: UNK
  9. CLARITIN [Concomitant]
     Active Substance: LORATADINE
     Dosage: UNK

REACTIONS (3)
  - Cough [Unknown]
  - Product container issue [Unknown]
  - Device malfunction [None]

NARRATIVE: CASE EVENT DATE: 201603
